FAERS Safety Report 8593195-X (Version None)
Quarter: 2012Q3

REPORT INFORMATION
  Report Type: 
  Country: None (occurrence: None)
  Receive Date: 20120814
  Receipt Date: 20120801
  Transmission Date: 20120928
  Serious: No
  Sender: FDA-Public Use
  Company Number: US-ASTRAZENECA-2012SE54398

PATIENT
  Age: 55 Year
  Sex: Male
  Weight: 81.6 kg

DRUGS (1)
  1. NEXIUM [Suspect]
     Indication: GASTROOESOPHAGEAL REFLUX DISEASE
     Route: 048
     Dates: start: 20120222, end: 20120229

REACTIONS (2)
  - ABDOMINAL PAIN UPPER [None]
  - JOINT STIFFNESS [None]
